FAERS Safety Report 8041924 (Version 3)
Quarter: 2012Q4

REPORT INFORMATION
  Report Type: 
  Country: US (occurrence: US)
  Receive Date: 20110718
  Receipt Date: 20120925
  Transmission Date: 20130627
  Serious: Yes (Life-Threatening, Hospitalization, Other)
  Sender: FDA-Public Use
  Company Number: US-BAYER-2011-061816

PATIENT
  Age: 19 Year
  Sex: Female
  Weight: 63.49 kg

DRUGS (7)
  1. YAZ [Suspect]
     Indication: CONTRACEPTION
     Dosage: UNK
     Dates: start: 20080417, end: 20080725
  2. YAZ [Suspect]
     Indication: PREMENSTRUAL SYNDROME
  3. AMITRIPTYLINE HCL [Concomitant]
     Dosage: 10 mg, UNK
  4. BUTALBITAL W/ASPIRIN,CAFFEINE [Concomitant]
  5. BACTRIM DS [Concomitant]
  6. DARVOCET [Concomitant]
  7. NERVOUS SYSTEM [Concomitant]

REACTIONS (15)
  - Pulmonary embolism [None]
  - Pleural effusion [None]
  - Atelectasis [None]
  - High risk pregnancy [None]
  - Injury [None]
  - Pain [None]
  - General physical health deterioration [None]
  - Emotional distress [None]
  - Pulmonary fibrosis [None]
  - Dyspnoea [None]
  - Back pain [None]
  - Haemoptysis [None]
  - Anxiety [None]
  - Fear [None]
  - Dyspnoea exertional [None]
